APPROVED DRUG PRODUCT: METFORMIN HYDROCHLORIDE
Active Ingredient: METFORMIN HYDROCHLORIDE
Strength: 850MG
Dosage Form/Route: TABLET;ORAL
Application: A076038 | Product #002
Applicant: SUN PHARMACEUTICAL INDUSTRIES INC
Approved: Feb 21, 2002 | RLD: No | RS: No | Type: DISCN